FAERS Safety Report 7275158-X (Version None)
Quarter: 2011Q1

REPORT INFORMATION
  Report Type: 
  Country: None (occurrence: None)
  Receive Date: 20110204
  Receipt Date: 20110125
  Transmission Date: 20110831
  Serious: Yes (Death, Hospitalization, Other)
  Sender: FDA-Public Use
  Company Number: PHHY2011PL03021

PATIENT
  Sex: Female
  Weight: 65 kg

DRUGS (14)
  1. GLEEVEC [Suspect]
     Indication: CHRONIC MYELOID LEUKAEMIA
     Dosage: 0.4/ 24 H
     Route: 048
     Dates: start: 20101124, end: 20101219
  2. FUROSEMIDE [Concomitant]
     Dosage: 5 AMPULE
     Route: 042
     Dates: start: 20101219, end: 20101225
  3. FUROSEMIDE [Concomitant]
     Dosage: 1 AMPULE DAILY
     Route: 042
     Dates: start: 20101226, end: 20110108
  4. EXACYL [Concomitant]
     Dosage: UNK
     Dates: start: 20101229, end: 20110109
  5. CLEXANE [Concomitant]
     Dates: start: 20101227, end: 20110103
  6. SPIRONOL [Concomitant]
     Dosage: 0.5 DF, UNK
     Dates: end: 20110110
  7. BETALOC [Concomitant]
     Dosage: UNK
     Route: 042
     Dates: start: 20101222, end: 20101227
  8. ALBUMIN NOS [Concomitant]
     Dosage: 50 ML, QD (FOR 3 DAYS)
  9. LENDACIN [Concomitant]
     Dosage: BID
     Dates: start: 20101220, end: 20110106
  10. CLEXANE [Concomitant]
     Dosage: 40 MG, UNK
     Dates: start: 20110110
  11. SPIRONOL [Concomitant]
     Dosage: 1 DF, UNK
     Dates: start: 20101220
  12. DIGOXIN [Concomitant]
     Dosage: 1/3 AMPULE
     Route: 042
     Dates: end: 20110109
  13. POTASSIUM CHLORIDE [Concomitant]
     Dosage: 7 TIMES DAURING STAY
  14. DIGOXIN [Concomitant]
     Dosage: 1/2 AMPULE
     Route: 042
     Dates: start: 20101219

REACTIONS (6)
  - GENERALISED OEDEMA [None]
  - CEREBROVASCULAR ACCIDENT [None]
  - HEMIPARESIS [None]
  - MALIGNANT PLEURAL EFFUSION [None]
  - ASCITES [None]
  - PERICARDIAL EFFUSION [None]
